FAERS Safety Report 4432235-6 (Version None)
Quarter: 2004Q3

REPORT INFORMATION
  Report Type: 
  Country: None (occurrence: None)
  Receive Date: 20040820
  Receipt Date: 20040810
  Transmission Date: 20050211
  Serious: Yes (Hospitalization, Other)
  Sender: FDA-Public Use
  Company Number: 2004055443

PATIENT
  Age: 75 Year
  Sex: Male

DRUGS (3)
  1. PHENYTOIN SODIUM [Suspect]
     Indication: EPILEPSY
     Dosage: 300 MG (100 MG), ORAL
     Route: 048
  2. ACETYLSALYCYLIC ACID (ACETYLSALICYLIC ACID) [Concomitant]
  3. HEPARIN-FRACTION, CALCIUM SALT (HEPARIN -FRACTION, CALCIUM SALT) [Concomitant]

REACTIONS (6)
  - ACCIDENTAL OVERDOSE [None]
  - CEREBRAL ATROPHY [None]
  - DILATATION VENTRICULAR [None]
  - DRUG LEVEL INCREASED [None]
  - EPILEPSY [None]
  - MEMORY IMPAIRMENT [None]
